FAERS Safety Report 4697101-X (Version None)
Quarter: 2005Q2

REPORT INFORMATION
  Report Type: 
  Country: None (occurrence: None)
  Receive Date: 20050622
  Receipt Date: 20050509
  Transmission Date: 20051028
  Serious: Yes (Hospitalization)
  Sender: FDA-Public Use
  Company Number: DE-MERCK-0505DEU00062

PATIENT
  Age: 64 Year
  Sex: Female

DRUGS (5)
  1. VIOXX [Suspect]
     Indication: RHEUMATOID ARTHRITIS
     Route: 048
     Dates: start: 20001124, end: 20040101
  2. TORSEMIDE [Concomitant]
     Indication: HYPERTENSION
     Route: 048
     Dates: start: 20010801
  3. METHOTREXATE [Concomitant]
     Indication: RHEUMATOID ARTHRITIS
     Route: 048
     Dates: start: 20000701
  4. LEVOTHYROXINE SODIUM [Concomitant]
     Indication: THYROIDECTOMY
     Route: 048
     Dates: start: 19900101
  5. [THERAPY UNSPECIFIED] [Concomitant]
     Indication: HYPERTENSION
     Route: 048

REACTIONS (5)
  - ANGINA PECTORIS [None]
  - ATRIOVENTRICULAR BLOCK FIRST DEGREE [None]
  - CHOLELITHIASIS [None]
  - CORONARY ARTERY DISEASE [None]
  - HYPERTENSION [None]
